FAERS Safety Report 15020430 (Version 1)
Quarter: 2018Q2

REPORT INFORMATION
  Report Type: Spontaneous
  Country: US (occurrence: US)
  Receive Date: 20180531
  Receipt Date: 20180531
  Transmission Date: 20180711
  Serious: Yes (Life-Threatening, Hospitalization, Other)
  Sender: FDA-Public Use
  Company Number: None

PATIENT
  Age: 50 Year
  Sex: Male
  Weight: 170.3 kg

DRUGS (7)
  1. HYDROCHLOROTHIAZIDE 25 MG TABLET [Concomitant]
     Dates: start: 20170420
  2. TRAZODONE 50 MG TABLET [Concomitant]
     Dates: start: 20180501
  3. LISINOPRIL. [Suspect]
     Active Substance: LISINOPRIL
     Indication: HYPERTENSION
     Dates: start: 20180207, end: 20180527
  4. ALPRAZOLAM 0.5 MG TABLET [Concomitant]
     Dates: start: 20180404
  5. METOPROLOL 100 MG TABLET [Concomitant]
     Dates: start: 20171221
  6. VENLAFAXINE 75 MG TABLET [Concomitant]
     Dates: start: 20171221
  7. SILVER SULFADIAZINE 1% CREAM [Concomitant]
     Dates: start: 20180525

REACTIONS (2)
  - Drug hypersensitivity [None]
  - Angioedema [None]

NARRATIVE: CASE EVENT DATE: 20180527
